FAERS Safety Report 22030146 (Version 3)
Quarter: 2023Q1

REPORT INFORMATION
  Report Type: Spontaneous
  Country: BR (occurrence: BR)
  Receive Date: 20230223
  Receipt Date: 20230307
  Transmission Date: 20230418
  Serious: Yes (Hospitalization, Other)
  Sender: FDA-Public Use
  Company Number: BR-ELI_LILLY_AND_COMPANY-BR202302003594

PATIENT
  Age: 64 Year
  Sex: Female

DRUGS (4)
  1. TALTZ [Interacting]
     Active Substance: IXEKIZUMAB
     Indication: Psoriasis
     Dosage: 160 MG, SINGLE, LOADING DOSE
     Route: 065
  2. TALTZ [Interacting]
     Active Substance: IXEKIZUMAB
     Dosage: 80 MG, MONTHLY (1/M)
     Route: 065
  3. METOPROLOL SUCCINATE [Interacting]
     Active Substance: METOPROLOL SUCCINATE
     Indication: Hypertension
     Dosage: 25 MG, UNKNOWN
     Route: 065
  4. ENALAPRIL MALEATE [Interacting]
     Active Substance: ENALAPRIL MALEATE
     Indication: Hypertension
     Dosage: UNK UNK, UNKNOWN
     Route: 065

REACTIONS (7)
  - Hypertensive crisis [Not Recovered/Not Resolved]
  - Transient ischaemic attack [Unknown]
  - Tachycardia [Unknown]
  - Psoriasis [Unknown]
  - Malaise [Unknown]
  - Drug interaction [Unknown]
  - Drug hypersensitivity [Unknown]

NARRATIVE: CASE EVENT DATE: 20230127
